FAERS Safety Report 12932098 (Version 6)
Quarter: 2017Q3

REPORT INFORMATION
  Report Type: Report from Study
  Country: US (occurrence: US)
  Receive Date: 20161111
  Receipt Date: 20170926
  Transmission Date: 20171127
  Serious: No
  Sender: FDA-Public Use
  Company Number: US-ALEXION PHARMACEUTICALS INC.-A201608676

PATIENT
  Sex: Female

DRUGS (1)
  1. STRENSIQ [Suspect]
     Active Substance: ASFOTASE ALFA
     Indication: HYPOPHOSPHATASIA
     Dosage: UNK
     Route: 058

REACTIONS (10)
  - Ligament rupture [Unknown]
  - Arthropathy [Unknown]
  - Cartilage injury [Unknown]
  - Arthralgia [Unknown]
  - Back pain [Unknown]
  - Insomnia [Unknown]
  - Pain in extremity [Unknown]
  - Asthenia [Unknown]
  - Inflammation [Unknown]
  - Weight decreased [Unknown]
